FAERS Safety Report 13517244 (Version 1)
Quarter: 2017Q2

REPORT INFORMATION
  Report Type: Spontaneous
  Country: US (occurrence: US)
  Receive Date: 20170504
  Receipt Date: 20170504
  Transmission Date: 20170830
  Serious: Yes (Hospitalization)
  Sender: FDA-Public Use
  Company Number: None

PATIENT
  Age: 25 Year
  Sex: Female
  Weight: 51.3 kg

DRUGS (2)
  1. MINOCYCLINE [Suspect]
     Active Substance: MINOCYCLINE\MINOCYCLINE HYDROCHLORIDE
     Indication: ROSACEA
     Dosage: ?          QUANTITY:1 CAPSULE(S);?
     Route: 048
     Dates: start: 20170413, end: 20170501
  2. ELIDEL [Concomitant]
     Active Substance: PIMECROLIMUS

REACTIONS (6)
  - Drug hypersensitivity [None]
  - Dysphagia [None]
  - Pruritus [None]
  - Pharyngeal oedema [None]
  - Urticaria [None]
  - Eyelid oedema [None]

NARRATIVE: CASE EVENT DATE: 20170501
